FAERS Safety Report 10547188 (Version 3)
Quarter: 2014Q4

REPORT INFORMATION
  Report Type: Spontaneous
  Country: US (occurrence: US)
  Receive Date: 20141027
  Receipt Date: 20141202
  Transmission Date: 20150529
  Serious: No
  Sender: FDA-Public Use
  Company Number: US-009507513-1410USA010830

PATIENT
  Age: 61 Year
  Sex: Female

DRUGS (5)
  1. PROMETHAZINE [Concomitant]
     Active Substance: PROMETHAZINE\PROMETHAZINE HYDROCHLORIDE
  2. HYDROCHLOROTHIAZIDE. [Concomitant]
     Active Substance: HYDROCHLOROTHIAZIDE
  3. PRINIVIL [Concomitant]
     Active Substance: LISINOPRIL
     Route: 048
  4. DOXEPIN HYDROCHLORIDE. [Concomitant]
     Active Substance: DOXEPIN HYDROCHLORIDE
  5. PEGINTRON [Suspect]
     Active Substance: PEGINTERFERON ALFA-2B
     Indication: HEPATITIS C
     Dosage: STRENGTH AND DOSE:150 MCG/ 0.5 ML QW
     Route: 058
     Dates: start: 20140925

REACTIONS (7)
  - Feeling hot [Unknown]
  - Pruritus [Unknown]
  - Chills [Unknown]
  - Injection site erythema [Unknown]
  - Product quality issue [Unknown]
  - Nausea [Unknown]
  - Hyperhidrosis [Unknown]

NARRATIVE: CASE EVENT DATE: 2014
